FAERS Safety Report 9008195 (Version 1)
Quarter: 2012Q4

REPORT INFORMATION
  Report Type: Spontaneous
  Country: RS (occurrence: None)
  Receive Date: 20121227
  Receipt Date: 20121227
  Transmission Date: 20130627
  Serious: Yes (Other)
  Sender: FDA-Public Use
  Company Number: 7183219

PATIENT
  Age: 53 Year
  Sex: Female

DRUGS (2)
  1. MITOXANTRONE [Suspect]
     Indication: SECONDARY PROGRESSIVE MULTIPLE SCLEROSIS
     Dosage: very 3 months.
     Route: 042
  2. L-THYROXIN [Suspect]
     Indication: THYROID CARCINOMA

REACTIONS (5)
  - Medullary thyroid cancer [None]
  - Superficial spreading melanoma stage unspecified [None]
  - Progesterone receptor assay positive [None]
  - Oestrogen receptor assay positive [None]
  - Invasive lobular breast carcinoma [None]
